FAERS Safety Report 23667551 (Version 1)
Quarter: 2024Q1

REPORT INFORMATION
  Report Type: Spontaneous
  Country: US (occurrence: US)
  Receive Date: 20240325
  Receipt Date: 20240325
  Transmission Date: 20240410
  Serious: No
  Sender: FDA-Public Use
  Company Number: US-TEVA-VS-3158104

PATIENT
  Age: 57 Year
  Sex: Female

DRUGS (1)
  1. HYDROCHLOROTHIAZIDE [Suspect]
     Active Substance: HYDROCHLOROTHIAZIDE
     Indication: Product used for unknown indication
     Dosage: 2 TABLET BY MOUTH ONCE  DAILY
     Route: 048

REACTIONS (5)
  - Movement disorder [Unknown]
  - Headache [Unknown]
  - Nausea [Unknown]
  - Brain fog [Unknown]
  - Fatigue [Unknown]
